FAERS Safety Report 13168888 (Version 1)
Quarter: 2017Q1

REPORT INFORMATION
  Report Type: Spontaneous
  Country: US (occurrence: US)
  Receive Date: 20170131
  Receipt Date: 20170131
  Transmission Date: 20170428
  Serious: No
  Sender: FDA-Public Use
  Company Number: US-CVS PREMIER BRANDS OF AMERICA INC.-1062581

PATIENT
  Age: 62 Year
  Sex: Male

DRUGS (3)
  1. LEVOTHYROXINE. [Interacting]
     Active Substance: LEVOTHYROXINE
  2. SALICYLIC ACID. [Suspect]
     Active Substance: SALICYLIC ACID
     Route: 003
     Dates: start: 20170101, end: 20170110
  3. TAMSULOSIN HYDROCHLORIDE. [Interacting]
     Active Substance: TAMSULOSIN HYDROCHLORIDE

REACTIONS (1)
  - Haemorrhage [Recovered/Resolved]

NARRATIVE: CASE EVENT DATE: 20170110
